FAERS Safety Report 4327898-X (Version None)
Quarter: 2004Q1

REPORT INFORMATION
  Report Type: 
  Country: None (occurrence: None)
  Receive Date: 20040325
  Receipt Date: 20040315
  Transmission Date: 20041129
  Serious: Yes (Life-Threatening)
  Sender: FDA-Public Use
  Company Number: JP-JNJFOC-20040303794

PATIENT

DRUGS (7)
  1. RISPERDAL [Suspect]
     Indication: SCHIZOPHRENIA
     Dosage: 2 MG, IN 1 DAY, ORAL
     Route: 048
     Dates: end: 20031223
  2. VALPROATE SODIUM [Concomitant]
  3. TIAPRIDE HYDROCHLORIDE (TIAPRIDE HYDROCHLORIDE) [Concomitant]
  4. FLUNITRAZEPAM (FLUNITRAZEPAM) [Concomitant]
  5. ESTAZOLAM [Concomitant]
  6. CHLORPROMAZINE [Concomitant]
  7. BIPERIDEN HYDROCHLORIDE TAB [Concomitant]

REACTIONS (2)
  - LEUKOPENIA [None]
  - PNEUMONIA [None]
